FAERS Safety Report 9881122 (Version 1)
Quarter: 2014Q1

REPORT INFORMATION
  Report Type: Spontaneous
  Country: CA (occurrence: CA)
  Receive Date: 20140207
  Receipt Date: 20140207
  Transmission Date: 20141002
  Serious: Yes (Death)
  Sender: FDA-Public Use
  Company Number: CA-ASTRAZENECA-2014SE07994

PATIENT
  Age: 74 Year
  Sex: Male
  Weight: 89.8 kg

DRUGS (10)
  1. CASODEX [Suspect]
     Route: 048
  2. ELIGARD [Suspect]
     Route: 065
  3. ELIGARD [Suspect]
     Dosage: LUPRON DEPOT, 30 MG, ONE EVERY FOUR MONTHS
     Route: 030
  4. ASA [Concomitant]
  5. DOCUSATE SODIUM [Concomitant]
  6. FLUTAMIDE [Concomitant]
  7. GLICLAZIDE MR [Concomitant]
  8. METOPROLOL [Concomitant]
  9. TAMSULOSIN CR [Concomitant]
  10. ULORIC [Concomitant]

REACTIONS (28)
  - Arthralgia [Fatal]
  - Back pain [Fatal]
  - Bladder neck obstruction [Fatal]
  - Bone lesion [Fatal]
  - Confusional state [Fatal]
  - Device related infection [Fatal]
  - Drug intolerance [Fatal]
  - Drug resistance [Fatal]
  - Exostosis [Fatal]
  - Hypercalcaemia [Fatal]
  - Hypersomnia [Fatal]
  - Intervertebral disc degeneration [Fatal]
  - Lethargy [Fatal]
  - Malaise [Fatal]
  - Mass [Fatal]
  - Metastases to lung [Fatal]
  - Metastases to spine [Fatal]
  - Osteoarthritis [Fatal]
  - Pathological fracture [Fatal]
  - Pleural effusion [Fatal]
  - Prostate cancer metastatic [Fatal]
  - Purulent discharge [Fatal]
  - Renal failure [Fatal]
  - Skin lesion [Fatal]
  - Spinal osteoarthritis [Fatal]
  - Tumour invasion [Fatal]
  - Urethral stenosis [Fatal]
  - Urinary tract infection [Fatal]
